FAERS Safety Report 5841366-5 (Version None)
Quarter: 2008Q3

REPORT INFORMATION
  Report Type: 
  Country: None (occurrence: None)
  Receive Date: 20080812
  Receipt Date: 20080805
  Transmission Date: 20090109
  Serious: Yes (Life-Threatening, Other)
  Sender: FDA-Public Use
  Company Number: FR-BAYER-200820068GPV

PATIENT
  Age: 49 Year
  Sex: Female
  Weight: 78 kg

DRUGS (4)
  1. MIRENA [Suspect]
     Indication: HYPERPLASIA
     Route: 015
     Dates: start: 20020701
  2. MIRENA [Suspect]
     Route: 015
     Dates: start: 20071101
  3. ANTI-INFLAMMATORY DRUGS [Concomitant]
     Indication: MUSCULOSKELETAL PAIN
     Route: 065
  4. TAMOXIFEN CITRATE [Concomitant]
     Indication: DRUG USE FOR UNKNOWN INDICATION
     Route: 048
     Dates: start: 20010101, end: 20080201

REACTIONS (5)
  - AMENORRHOEA [None]
  - BREAST CANCER METASTATIC [None]
  - LYMPHADENOPATHY [None]
  - METASTASES TO LUNG [None]
  - PAIN IN EXTREMITY [None]
